FAERS Safety Report 6035877-X (Version None)
Quarter: 2009Q1

REPORT INFORMATION
  Report Type: 
  Country: None (occurrence: None)
  Receive Date: 20090113
  Receipt Date: 20090109
  Transmission Date: 20090719
  Serious: Yes (Hospitalization)
  Sender: FDA-Public Use
  Company Number: A0709952A

PATIENT
  Age: 54 Year
  Sex: Female
  Weight: 104.5 kg

DRUGS (7)
  1. AVANDIA [Suspect]
     Dosage: 2MG TWICE PER DAY
     Route: 048
     Dates: start: 20030101, end: 20050412
  2. AVANDAMET [Suspect]
     Route: 048
     Dates: start: 20030101, end: 20060101
  3. METFORMIN [Concomitant]
     Dates: start: 20000301, end: 20060403
  4. ACTOS [Concomitant]
     Dates: start: 20050910, end: 20060403
  5. GLUCOPHAGE [Concomitant]
     Dates: start: 20030327, end: 20040317
  6. STARLIX [Concomitant]
     Dates: start: 20050502, end: 20050608
  7. DIABETA [Concomitant]
     Dates: start: 20000202, end: 20061007

REACTIONS (3)
  - CARDIOVASCULAR DISORDER [None]
  - HEART RATE IRREGULAR [None]
  - MYOCARDIAL INFARCTION [None]
